FAERS Safety Report 23717544 (Version 1)
Quarter: 2024Q2

REPORT INFORMATION
  Report Type: Spontaneous
  Country: US (occurrence: US)
  Receive Date: 20240408
  Receipt Date: 20240408
  Transmission Date: 20240716
  Serious: Yes (Hospitalization, Other)
  Sender: FDA-Public Use
  Company Number: US-TEVA-VS-3178009

PATIENT
  Age: 47 Year
  Sex: Female

DRUGS (1)
  1. GRANIX [Suspect]
     Active Substance: TBO-FILGRASTIM
     Indication: Neutropenia
     Route: 065

REACTIONS (7)
  - Autoimmune disorder [Unknown]
  - Adverse drug reaction [Unknown]
  - Neutropenia [Unknown]
  - Thrombocytopenia [Unknown]
  - Fatigue [Unknown]
  - Illness [Unknown]
  - Impaired work ability [Unknown]
